FAERS Safety Report 8269723-0 (Version None)
Quarter: 2012Q2

REPORT INFORMATION
  Report Type: 
  Country: None (occurrence: None)
  Receive Date: 20120405
  Receipt Date: 20120327
  Transmission Date: 20120825
  Serious: Yes (Hospitalization)
  Sender: FDA-Public Use
  Company Number: UTC-017051

PATIENT
  Age: 62 Year
  Sex: Female
  Weight: 64.45 kg

DRUGS (5)
  1. DIURETICS (DIURETICS) [Concomitant]
  2. REMODULIN [Suspect]
     Indication: PULMONARY ARTERIAL HYPERTENSION
     Dosage: 56.88 UG/KG (0.0395 UG/KG, 1 IN 1 MIN), INTRAVENOUS
     Route: 042
     Dates: start: 20111116
  3. REMODULIN [Suspect]
     Indication: PULMONARY ARTERIAL HYPERTENSION
     Dosage: 56.88 UG/KG (0.0395 UG/KG, 1 IN 1 MIN), INTRAVENOUS
     Route: 042
     Dates: start: 20111123
  4. LETAIRIS [Concomitant]
  5. REVATIO [Concomitant]

REACTIONS (6)
  - DIZZINESS [None]
  - DECREASED APPETITE [None]
  - CONFUSIONAL STATE [None]
  - OEDEMA [None]
  - ANAEMIA [None]
  - ASTHENIA [None]
